FAERS Safety Report 5464982-1 (Version None)
Quarter: 2007Q3

REPORT INFORMATION
  Report Type: 
  Country: None (occurrence: None)
  Receive Date: 20070820
  Receipt Date: 20070529
  Transmission Date: 20080115
  Serious: No
  Sender: FDA-Public Use
  Company Number: TPA2007A01196

PATIENT
  Age: 42 Year
  Sex: Female
  Weight: 90.7194 kg

DRUGS (7)
  1. ROZEREM [Suspect]
     Indication: INSOMNIA
     Dosage: 8 MG, HS, PER ORAL
     Route: 048
     Dates: start: 20060101
  2. ALLEGRA (FEXOFENADINE HYDROCHLORIDE) [Concomitant]
  3. ALLERX-D (HYOSCINEMETHOBROMIDE, PSEUDOEPHEDRINE HYDROCHLORIDE) [Concomitant]
  4. NASONEX [Concomitant]
  5. FLONASE [Concomitant]
  6. TIAZAC [Concomitant]
  7. XANAX [Concomitant]

REACTIONS (3)
  - ABNORMAL DREAMS [None]
  - MIDDLE INSOMNIA [None]
  - SOMNOLENCE [None]
